FAERS Safety Report 15116727 (Version 2)
Quarter: 2018Q3

REPORT INFORMATION
  Report Type: Spontaneous
  Country: CN (occurrence: CN)
  Receive Date: 20180706
  Receipt Date: 20180719
  Transmission Date: 20181010
  Serious: Yes (Hospitalization)
  Sender: FDA-Public Use
  Company Number: CN-PFIZER INC-2018270785

PATIENT
  Age: 72 Year
  Sex: Female

DRUGS (7)
  1. MEPEM [Suspect]
     Active Substance: MEROPENEM
     Indication: LUNG INFECTION
     Dosage: 0.5 G, 3X/DAY
     Route: 041
     Dates: start: 20180505, end: 20180513
  2. OSELTAMIVIR PHOSPHATE. [Concomitant]
     Active Substance: OSELTAMIVIR PHOSPHATE
     Dosage: 75MG, Q12H
     Route: 048
     Dates: start: 20180505
  3. OSELTAMIVIR PHOSPHATE. [Concomitant]
     Active Substance: OSELTAMIVIR PHOSPHATE
     Dosage: 75MG, QD.
     Route: 048
     Dates: start: 20180511
  4. CEFTAZIDIME. [Suspect]
     Active Substance: CEFTAZIDIME
     Indication: LUNG INFECTION
     Dosage: 2 G, 2X/DAY
     Route: 041
     Dates: start: 20180513, end: 20180515
  5. SODIUM CHLORIDE. [Concomitant]
     Active Substance: SODIUM CHLORIDE
     Dosage: 200 ML, QD
     Route: 041
     Dates: start: 20180505
  6. ETIMICIN SULFATE [Concomitant]
     Active Substance: ETIMICIN SULFATE
     Dosage: 200 ML, QD
     Route: 041
     Dates: start: 20180505
  7. SODIUM CHLORIDE. [Concomitant]
     Active Substance: SODIUM CHLORIDE
     Dosage: 100 ML, Q8H
     Route: 041
     Dates: start: 20180505

REACTIONS (2)
  - Blood fibrinogen decreased [Recovering/Resolving]
  - Hepatic enzyme increased [Recovering/Resolving]

NARRATIVE: CASE EVENT DATE: 20180515
